FAERS Safety Report 5916664-7 (Version None)
Quarter: 2008Q4

REPORT INFORMATION
  Report Type: 
  Country: None (occurrence: None)
  Receive Date: 20081009
  Receipt Date: 20081001
  Transmission Date: 20090506
  Serious: Yes (Other)
  Sender: FDA-Public Use
  Company Number: JPI-P-002207

PATIENT
  Age: 27 Year
  Sex: Female
  Weight: 52.6173 kg

DRUGS (12)
  1. XYREM [Suspect]
     Indication: CATAPLEXY
     Dosage: 4 GM ( 2 GM, 2 IN 1 D), ORAL 3.75 GM (3.75 GM, 1 IN 1 D), ORAL 3 GM ( 3 GM,1 IN 1 D), ORAL
     Route: 048
     Dates: start: 20070101
  2. XYREM [Suspect]
     Indication: NARCOLEPSY
     Dosage: 4 GM ( 2 GM, 2 IN 1 D), ORAL 3.75 GM (3.75 GM, 1 IN 1 D), ORAL 3 GM ( 3 GM,1 IN 1 D), ORAL
     Route: 048
     Dates: start: 20070101
  3. XYREM [Suspect]
     Indication: SOMNOLENCE
     Dosage: 4 GM ( 2 GM, 2 IN 1 D), ORAL 3.75 GM (3.75 GM, 1 IN 1 D), ORAL 3 GM ( 3 GM,1 IN 1 D), ORAL
     Route: 048
     Dates: start: 20070101
  4. XYREM [Suspect]
     Indication: CATAPLEXY
     Dosage: 4 GM ( 2 GM, 2 IN 1 D), ORAL 3.75 GM (3.75 GM, 1 IN 1 D), ORAL 3 GM ( 3 GM,1 IN 1 D), ORAL
     Route: 048
     Dates: start: 20070101
  5. XYREM [Suspect]
     Indication: NARCOLEPSY
     Dosage: 4 GM ( 2 GM, 2 IN 1 D), ORAL 3.75 GM (3.75 GM, 1 IN 1 D), ORAL 3 GM ( 3 GM,1 IN 1 D), ORAL
     Route: 048
     Dates: start: 20070101
  6. XYREM [Suspect]
     Indication: SOMNOLENCE
     Dosage: 4 GM ( 2 GM, 2 IN 1 D), ORAL 3.75 GM (3.75 GM, 1 IN 1 D), ORAL 3 GM ( 3 GM,1 IN 1 D), ORAL
     Route: 048
     Dates: start: 20070101
  7. XYREM [Suspect]
     Indication: CATAPLEXY
     Dosage: 4 GM ( 2 GM, 2 IN 1 D), ORAL 3.75 GM (3.75 GM, 1 IN 1 D), ORAL 3 GM ( 3 GM,1 IN 1 D), ORAL
     Route: 048
     Dates: start: 20070401
  8. XYREM [Suspect]
     Indication: NARCOLEPSY
     Dosage: 4 GM ( 2 GM, 2 IN 1 D), ORAL 3.75 GM (3.75 GM, 1 IN 1 D), ORAL 3 GM ( 3 GM,1 IN 1 D), ORAL
     Route: 048
     Dates: start: 20070401
  9. XYREM [Suspect]
     Indication: SOMNOLENCE
     Dosage: 4 GM ( 2 GM, 2 IN 1 D), ORAL 3.75 GM (3.75 GM, 1 IN 1 D), ORAL 3 GM ( 3 GM,1 IN 1 D), ORAL
     Route: 048
     Dates: start: 20070401
  10. TRAMADOL HCL [Concomitant]
  11. AMPHETAMINE MIXEDSALTS (AMFETAMINE SULFATE) [Concomitant]
  12. MODAFINIL [Concomitant]

REACTIONS (8)
  - DRUG EXPOSURE DURING PREGNANCY [None]
  - DRUG INEFFECTIVE [None]
  - FATIGUE [None]
  - POOR QUALITY SLEEP [None]
  - PREGNANCY [None]
  - SOMNOLENCE [None]
  - WEIGHT DECREASED [None]
  - WEIGHT GAIN POOR [None]
